FAERS Safety Report 18469365 (Version 2)
Quarter: 2021Q1

REPORT INFORMATION
  Report Type: Spontaneous
  Country: US (occurrence: US)
  Receive Date: 20201105
  Receipt Date: 20210121
  Transmission Date: 20210419
  Serious: Yes (Other)
  Sender: FDA-Public Use
  Company Number: US-TEVA-2020-US-1843892

PATIENT
  Age: 68 Year
  Sex: Female

DRUGS (2)
  1. POSACONAZOLE [Suspect]
     Active Substance: POSACONAZOLE
     Indication: PNEUMONIA
     Dosage: 300 MILLIGRAM DAILY;
     Route: 048
  2. VORICONAZOLE. [Suspect]
     Active Substance: VORICONAZOLE
     Indication: PNEUMONIA
     Route: 065

REACTIONS (4)
  - Hypokalaemia [Recovered/Resolved]
  - Pseudoaldosteronism [Recovered/Resolved]
  - Hypertension [Recovered/Resolved]
  - Treatment failure [Unknown]
